FAERS Safety Report 7435343-0 (Version None)
Quarter: 2011Q2

REPORT INFORMATION
  Report Type: 
  Country: None (occurrence: None)
  Receive Date: 20110425
  Receipt Date: 20110418
  Transmission Date: 20111010
  Serious: Yes (Other)
  Sender: FDA-Public Use
  Company Number: A0924103A

PATIENT

DRUGS (2)
  1. AVANDIA [Suspect]
     Route: 065
  2. GLUCOPHAGE [Suspect]
     Route: 065

REACTIONS (1)
  - DIABETES MELLITUS INADEQUATE CONTROL [None]
